APPROVED DRUG PRODUCT: PERIOSTAT
Active Ingredient: DOXYCYCLINE HYCLATE
Strength: EQ 20MG BASE **Federal Register determination that product was not discontinued or withdrawn for safety or effectiveness reasons**
Dosage Form/Route: TABLET;ORAL
Application: N050783 | Product #001
Applicant: GALDERMA LABORATORIES LP
Approved: Feb 2, 2001 | RLD: Yes | RS: No | Type: DISCN